FAERS Safety Report 5170674-9 (Version None)
Quarter: 2006Q4

REPORT INFORMATION
  Report Type: 
  Country: None (occurrence: None)
  Receive Date: 20061205
  Receipt Date: 20061121
  Transmission Date: 20070319
  Serious: Yes (Hospitalization)
  Sender: FDA-Public Use
  Company Number: 231967

PATIENT
  Age: 70 Year
  Sex: Female

DRUGS (15)
  1. MABTHERA [Suspect]
     Indication: LYMPHOMA
     Dosage: 600 MG, INTRAVENOUS
     Route: 042
     Dates: start: 20061027, end: 20061027
  2. CYCLOPHOSPHAMIDE [Suspect]
     Indication: LYMPHOMA
     Dosage: 1200 MG, INTRAVENOUS
     Route: 042
     Dates: start: 20061027, end: 20061027
  3. DOXORUBICIN HCL [Suspect]
     Indication: LYMPHOMA
     Dosage: 80 MG, INTRAVENOUS
     Route: 042
     Dates: start: 20061027, end: 20061027
  4. VINCRISTINE [Suspect]
     Indication: LYMPHOMA
     Dosage: 1 MG, INTRAVENOUS
     Route: 042
     Dates: start: 20061027, end: 20061027
  5. PREDNISONE TAB [Suspect]
     Indication: LYMPHOMA
  6. OMEPRAZOLE [Concomitant]
  7. ................. [Concomitant]
  8. ALLOPURINOL [Concomitant]
  9. CLARITHROMYCIN [Concomitant]
  10. ATORVASTATIN [Concomitant]
  11. CANDESARTAN [Concomitant]
  12. ISOSORBIDE [Concomitant]
  13. DILTIAZEM HCL [Concomitant]
  14. MOVICOL                         (ELECTROLYTES NOS, POLYETHYLENE GLYCOL [Concomitant]
  15. FLUCONAZOLE [Concomitant]

REACTIONS (1)
  - CENTRAL NERVOUS SYSTEM LYMPHOMA [None]
